FAERS Safety Report 4777806-2 (Version None)
Quarter: 2005Q3

REPORT INFORMATION
  Report Type: 
  Country: None (occurrence: None)
  Receive Date: 20050925
  Receipt Date: 20050914
  Transmission Date: 20060218
  Serious: Yes (Death)
  Sender: FDA-Public Use
  Company Number: US-JNJFOC-20030601026

PATIENT
  Sex: Female

DRUGS (17)
  1. REMICADE [Suspect]
  2. REMICADE [Suspect]
     Indication: RHEUMATOID ARTHRITIS
  3. METHOTREXATE [Concomitant]
  4. FOLIC ACID [Concomitant]
  5. DARVOCET [Concomitant]
  6. DARVOCET [Concomitant]
     Dosage: 100/650 MG
  7. ATENOLOL [Concomitant]
  8. SYNTHROID [Concomitant]
  9. MULTI-VITAMIN [Concomitant]
  10. MULTI-VITAMIN [Concomitant]
  11. MULTI-VITAMIN [Concomitant]
  12. MULTI-VITAMIN [Concomitant]
  13. MULTI-VITAMIN [Concomitant]
  14. MULTI-VITAMIN [Concomitant]
  15. MULTI-VITAMIN [Concomitant]
  16. MULTI-VITAMIN [Concomitant]
  17. OXYCONTIN [Concomitant]

REACTIONS (1)
  - CEREBROVASCULAR ACCIDENT [None]
